FAERS Safety Report 24005967 (Version 1)
Quarter: 2024Q2

REPORT INFORMATION
  Report Type: Spontaneous
  Country: ZA (occurrence: ZA)
  Receive Date: 20240624
  Receipt Date: 20240624
  Transmission Date: 20240716
  Serious: Yes (Other)
  Sender: FDA-Public Use
  Company Number: ZA-ABBOTT-2024A-1383130

PATIENT
  Age: 80 Year
  Sex: Female

DRUGS (21)
  1. CREON [Suspect]
     Active Substance: PANCRELIPASE AMYLASE\PANCRELIPASE LIPASE\PANCRELIPASE PROTEASE
     Indication: Pancreatic failure
     Dosage: 300 MG TAKE ONE CAPSULE THREE TIMES A DAY?CREON 25000
     Route: 048
  2. FUROSEMIDE [Concomitant]
     Active Substance: FUROSEMIDE
     Indication: Hypertension
     Dosage: 40 MG TAKE ONE TABLET ONCE A DAY
     Route: 048
  3. CARVEDILOL [Concomitant]
     Active Substance: CARVEDILOL
     Indication: Hypertension
     Dosage: 6.25 MG TAKE ONE TABLET TWICE A DAY
     Route: 048
  4. PECTROLYTE [Concomitant]
     Indication: Product used for unknown indication
     Dosage: AS PER PACKAGE INSERT
     Route: 048
  5. ESOMEPRAZOLE [Concomitant]
     Active Substance: ESOMEPRAZOLE
     Indication: Gastrooesophageal reflux disease
     Dosage: 40 MG TAKE ONE TABLET ONCE A DAY
     Route: 048
  6. DS 24 [Concomitant]
     Indication: Blood disorder prophylaxis
     Dosage: TAKE ONE CAPSULE ONCE A DAY
     Route: 048
  7. THIAMINE [Concomitant]
     Active Substance: THIAMINE
     Indication: Product used for unknown indication
     Dosage: 100 MG TAKE ONE TABLET THREE TIMES A DAY
     Route: 048
  8. Spiractin [Concomitant]
     Indication: Hypertension
     Dosage: 25 MG TAKE ONE TABLET ONCE A DAY
     Route: 048
  9. ACITOP [Concomitant]
     Indication: Product used for unknown indication
     Dosage: 50 MG AS PER PACKAGE INSERT
     Route: 061
  10. ACETAMINOPHEN\TRAMADOL [Concomitant]
     Active Substance: ACETAMINOPHEN\TRAMADOL
     Indication: Pain
     Dosage: TAKE ONE TABLET THREE TIMES A DAY
     Route: 048
  11. POTASSIUM CHLORIDE [Concomitant]
     Active Substance: POTASSIUM CHLORIDE
     Indication: Hypokalaemia
     Dosage: 600 MG TAKE ONE TABLET ONCE A DAY
     Route: 048
  12. MAGNESIUM CHLORIDE [Concomitant]
     Active Substance: MAGNESIUM CHLORIDE
     Indication: Product used for unknown indication
     Dosage: TAKE TWO CAPSULES ONCE A DAY
     Route: 048
  13. Sandoz co amoxyclav [Concomitant]
     Indication: Product used for unknown indication
     Dosage: 1000 MG TAKE ONE TABLET TWICE A DAY
     Route: 048
  14. ASPIRIN [Concomitant]
     Active Substance: ASPIRIN
     Indication: Blood disorder prophylaxis
     Dosage: 100 MG AS DIRECTED
     Route: 048
  15. MACRODANTIN [Concomitant]
     Active Substance: NITROFURANTOIN
     Indication: Urinary tract disorder
     Dosage: 100 MG TAKE ONE CAPSULE ONCE A DAY
     Route: 048
  16. INTEFLORA [Concomitant]
     Indication: Product used for unknown indication
     Dosage: 250 MG TAKE ONE CAPSULE TWICE A DAY
     Route: 048
  17. ATORVASTATIN [Concomitant]
     Active Substance: ATORVASTATIN
     Indication: Blood cholesterol
     Dosage: 20 MG TAKE ONE TABLET AT NIGHT
     Route: 048
  18. CEFUROXIME [Concomitant]
     Active Substance: CEFUROXIME
     Indication: Product used for unknown indication
     Dosage: 250 MG TAKE ONE TABLET TWICE A DAY
     Route: 048
  19. TOBREX [Concomitant]
     Active Substance: TOBRAMYCIN
     Indication: Product used for unknown indication
     Dosage: 3 MG ONE DROP IN EYE THREE TIMES A DAY
     Route: 047
  20. GEN PAYNE [Concomitant]
     Indication: Product used for unknown indication
     Dosage: AS PER PACKAGE INSERT
     Route: 048
  21. Adco linctopent [Concomitant]
     Indication: Product used for unknown indication
     Dosage: AS DIRECTED
     Route: 048

REACTIONS (1)
  - Deafness [Unknown]
